FAERS Safety Report 5000993-8 (Version None)
Quarter: 2006Q2

REPORT INFORMATION
  Report Type: 
  Country: None (occurrence: None)
  Receive Date: 20060512
  Receipt Date: 20060502
  Transmission Date: 20061013
  Serious: Yes (Disabling)
  Sender: FDA-Public Use
  Company Number: 2006SE02548

PATIENT
  Age: 22434 Day
  Sex: Female

DRUGS (8)
  1. BLOPRESS [Suspect]
     Indication: HYPERTENSION
     Route: 048
     Dates: start: 20040101, end: 20050727
  2. BLOPRESS [Suspect]
     Route: 048
     Dates: start: 20050812
  3. PANTOPRAZOLE SODIUM [Concomitant]
     Route: 048
     Dates: end: 20050727
  4. PANTOPRAZOLE SODIUM [Concomitant]
     Route: 048
     Dates: start: 20050812
  5. THYREX [Concomitant]
     Route: 048
     Dates: end: 20050727
  6. THYREX [Concomitant]
     Route: 048
     Dates: start: 20050812
  7. PREMARIN PLUS [Concomitant]
     Route: 065
     Dates: end: 20050727
  8. PREMARIN PLUS [Concomitant]
     Route: 065
     Dates: start: 20050812

REACTIONS (1)
  - SENSATION OF FOREIGN BODY [None]
